FAERS Safety Report 9459845 (Version 1)
Quarter: 2013Q3

REPORT INFORMATION
  Report Type: Spontaneous
  Country: IT (occurrence: IT)
  Receive Date: 20130815
  Receipt Date: 20130815
  Transmission Date: 20140515
  Serious: Yes (Hospitalization)
  Sender: FDA-Public Use
  Company Number: IT-TEVA-423570ISR

PATIENT
  Age: 47 Year
  Sex: Female

DRUGS (1)
  1. ALPRAZOLAM [Suspect]
     Indication: INTENTIONAL SELF-INJURY
     Dosage: 10 ML DAILY;
     Route: 048
     Dates: start: 20130629, end: 20130629

REACTIONS (3)
  - Sopor [Recovering/Resolving]
  - Bradyphrenia [Recovering/Resolving]
  - Drug abuse [Recovering/Resolving]
